FAERS Safety Report 14393233 (Version 1)
Quarter: 2018Q1

REPORT INFORMATION
  Report Type: Report from Study
  Country: US (occurrence: US)
  Receive Date: 20180116
  Receipt Date: 20180116
  Transmission Date: 20180509
  Serious: Yes (Hospitalization)
  Sender: FDA-Public Use
  Company Number: US-EISAI MEDICAL RESEARCH-EC-2017-027226

PATIENT
  Age: 76 Year
  Sex: Female

DRUGS (9)
  1. LENVIMA [Suspect]
     Active Substance: LENVATINIB
     Route: 048
     Dates: start: 2017, end: 20170816
  2. LENVIMA [Suspect]
     Active Substance: LENVATINIB
     Route: 048
     Dates: start: 20170817
  3. PEPCID [Concomitant]
     Active Substance: FAMOTIDINE
  4. LENVIMA [Suspect]
     Active Substance: LENVATINIB
     Indication: THYROID CANCER
     Route: 048
     Dates: start: 20170421, end: 2017
  5. AUGMENTIN [Concomitant]
     Active Substance: AMOXICILLIN\CLAVULANATE POTASSIUM
     Indication: LOCALISED INFECTION
     Route: 048
     Dates: start: 201705
  6. LISINOPRIL. [Concomitant]
     Active Substance: LISINOPRIL
  7. LENVIMA [Suspect]
     Active Substance: LENVATINIB
     Route: 048
     Dates: start: 2017, end: 2017
  8. GABAPENTIN. [Suspect]
     Active Substance: GABAPENTIN
     Indication: PRODUCT USED FOR UNKNOWN INDICATION
     Dosage: UNKNOWN
     Route: 065
     Dates: start: 2017, end: 201707
  9. OXYCODONE [Concomitant]
     Active Substance: OXYCODONE

REACTIONS (19)
  - Blood pressure increased [Recovered/Resolved]
  - Faeces soft [Recovered/Resolved]
  - Lymphoedema [Not Recovered/Not Resolved]
  - Musculoskeletal pain [Not Recovered/Not Resolved]
  - Cough [Recovered/Resolved]
  - Heart rate increased [Not Recovered/Not Resolved]
  - Tooth discolouration [Unknown]
  - Haemoptysis [Recovering/Resolving]
  - Dermatitis allergic [Recovered/Resolved]
  - Deep vein thrombosis [Unknown]
  - Myalgia [Not Recovered/Not Resolved]
  - Bursitis [Not Recovered/Not Resolved]
  - Dyspepsia [Recovering/Resolving]
  - Pulmonary embolism [Unknown]
  - Oral pain [Recovered/Resolved]
  - Increased bronchial secretion [Recovering/Resolving]
  - Tracheostomy infection [Not Recovered/Not Resolved]
  - Peripheral swelling [Recovered/Resolved]
  - Fatigue [Not Recovered/Not Resolved]

NARRATIVE: CASE EVENT DATE: 2017
